FAERS Safety Report 9287660 (Version 3)
Quarter: 2013Q2

REPORT INFORMATION
  Report Type: Report from Study
  Country: NL (occurrence: NL)
  Receive Date: 20130514
  Receipt Date: 20130618
  Transmission Date: 20140414
  Serious: Yes (Death, Hospitalization)
  Sender: FDA-Public Use
  Company Number: NL-GENZYME-CLOF-1002622

PATIENT
  Age: 48 Year
  Sex: Female
  Weight: 84 kg

DRUGS (9)
  1. EVOLTRA [Suspect]
     Indication: ACUTE MYELOID LEUKAEMIA
     Dosage: 17 MG, UNK (INDUCTION I)
     Route: 042
     Dates: start: 20130220
  2. EVOLTRA [Suspect]
     Dosage: 19 MG, UNK (INDUCTION II)
     Route: 042
     Dates: start: 20130325
  3. AMSACRINE [Suspect]
     Indication: ACUTE MYELOID LEUKAEMIA
     Dosage: 230 MG, UNK(INDUCTION II)
     Route: 042
     Dates: start: 20130325
  4. CYTARABINE [Suspect]
     Indication: ACUTE MYELOID LEUKAEMIA
     Dosage: 344 MG, UNK(INDUCTION I)
     Route: 042
     Dates: start: 20130220
  5. CYTARABINE [Suspect]
     Dosage: 1920 MG, UNK(INDUCTION II)
     Route: 042
     Dates: start: 20130325
  6. IDARUBICIN [Suspect]
     Indication: ACUTE MYELOID LEUKAEMIA
     Dosage: 21 MG, UNK(INDUCTION I)
     Route: 042
     Dates: start: 20130220
  7. FOLIUMZUUR [Concomitant]
     Indication: PRODUCT USED FOR UNKNOWN INDICATION
     Dosage: 5 MG, QD
     Route: 065
  8. LEVOTHYROXINE [Concomitant]
     Indication: PRODUCT USED FOR UNKNOWN INDICATION
     Dosage: 100 MCG, QD
     Route: 065
  9. FERROGRADUMET [Concomitant]
     Indication: PRODUCT USED FOR UNKNOWN INDICATION
     Dosage: UNK
     Route: 065

REACTIONS (2)
  - Pancytopenia [Fatal]
  - Pneumonitis [Recovered/Resolved]
